FAERS Safety Report 23790273 (Version 3)
Quarter: 2024Q2

REPORT INFORMATION
  Report Type: Other
  Country: SK (occurrence: SK)
  Receive Date: 20240427
  Receipt Date: 20240523
  Transmission Date: 20240716
  Serious: Yes (Other)
  Sender: FDA-Public Use
  Company Number: SK-CELLTRION HEALTHCARE HUNGARY KFT-2024SK008821

PATIENT
  Age: 60 Year
  Sex: Female

DRUGS (2)
  1. RITUXIMAB [Suspect]
     Active Substance: RITUXIMAB
     Indication: Thrombotic thrombocytopenic purpura
     Route: 042
     Dates: start: 202301
  2. CAPLACIZUMAB [Suspect]
     Active Substance: CAPLACIZUMAB
     Indication: Thrombotic thrombocytopenic purpura
     Route: 065

REACTIONS (2)
  - Ophthalmic herpes simplex [Unknown]
  - Off label use [Unknown]

NARRATIVE: CASE EVENT DATE: 20230101
